FAERS Safety Report 8114103-1 (Version None)
Quarter: 2012Q1

REPORT INFORMATION
  Report Type: 
  Country: None (occurrence: None)
  Receive Date: 20120203
  Receipt Date: 20120125
  Transmission Date: 20120608
  Serious: Yes (Disabling)
  Sender: FDA-Public Use
  Company Number: US-ASTRAZENECA-2011SE72294

PATIENT
  Age: 84 Year
  Sex: Female
  Weight: 61.8 kg

DRUGS (4)
  1. ZOCOR [Concomitant]
  2. CRESTOR [Suspect]
     Route: 048
  3. LIPITOR [Concomitant]
  4. LOVAZA [Concomitant]
     Dosage: 4000 UNITS

REACTIONS (11)
  - TENDON PAIN [None]
  - MYALGIA [None]
  - BACK PAIN [None]
  - MALAISE [None]
  - ARTHRITIS [None]
  - OSTEOPOROSIS [None]
  - HEADACHE [None]
  - CRYING [None]
  - ARTHRALGIA [None]
  - PAIN [None]
  - MUSCULOSKELETAL PAIN [None]
